FAERS Safety Report 6979630-9 (Version None)
Quarter: 2010Q3

REPORT INFORMATION
  Report Type: 
  Country: None (occurrence: None)
  Receive Date: 20100910
  Receipt Date: 20100910
  Transmission Date: 20110219
  Serious: Yes (Death)
  Sender: FDA-Public Use
  Company Number: None

PATIENT
  Age: 61 Year
  Sex: Male
  Weight: 107 kg

DRUGS (15)
  1. WARFARIN SODIUM [Suspect]
     Indication: ATRIAL FIBRILLATION
     Dosage: 5MG DAILY PO
     Route: 048
     Dates: start: 20090912, end: 20090916
  2. PLAVIX [Suspect]
     Indication: STENT PLACEMENT
     Dosage: 75MG DAILY PO
     Route: 048
     Dates: start: 20090911, end: 20090924
  3. ACTOS [Concomitant]
  4. ADVAIR DISKUS 100/50 [Concomitant]
  5. GLYBURIDE AND METFORMIN HYDROCHLORIDE [Concomitant]
  6. CARDIZEM CD [Concomitant]
  7. RAMIPRIL [Concomitant]
  8. ZOCOR [Concomitant]
  9. TERAZOSIN HCL [Concomitant]
  10. TRENTAL [Concomitant]
  11. ASPIRIN [Concomitant]
  12. LOVENOX [Concomitant]
  13. ACULAR [Concomitant]
  14. TRUSOPT [Concomitant]
  15. FINASTERIDE [Concomitant]

REACTIONS (5)
  - CARDIO-RESPIRATORY ARREST [None]
  - CONTUSION [None]
  - HAEMATOMA [None]
  - INJECTION SITE REACTION [None]
  - PULMONARY ALVEOLAR HAEMORRHAGE [None]
